FAERS Safety Report 13900446 (Version 1)
Quarter: 2017Q3

REPORT INFORMATION
  Report Type: Spontaneous
  Country: FR (occurrence: FR)
  Receive Date: 20170823
  Receipt Date: 20170823
  Transmission Date: 20171127
  Serious: Yes (Other)
  Sender: FDA-Public Use
  Company Number: FR-MYLANLABS-2017M1051756

PATIENT

DRUGS (1)
  1. MYLAN MIDAZOLAM [Suspect]
     Active Substance: MIDAZOLAM HYDROCHLORIDE
     Indication: SEDATION
     Dosage: 8 MG, ONCE
     Route: 042
     Dates: start: 20170727, end: 20170727

REACTIONS (3)
  - Incorrect route of drug administration [Recovered/Resolved]
  - Sedation complication [Recovered/Resolved]
  - Hyporesponsive to stimuli [Recovered/Resolved]

NARRATIVE: CASE EVENT DATE: 20170727
